FAERS Safety Report 7469770-2 (Version None)
Quarter: 2011Q2

REPORT INFORMATION
  Report Type: 
  Country: None (occurrence: None)
  Receive Date: 20110510
  Receipt Date: 20110427
  Transmission Date: 20111010
  Serious: Yes (Disabling, Other)
  Sender: FDA-Public Use
  Company Number: JP-CELGENEUS-087-CCAZA-11041710

PATIENT
  Age: 83 Year
  Sex: Male

DRUGS (5)
  1. AZACITIDINE [Suspect]
     Dosage: 110 MILLIGRAM
     Route: 058
     Dates: start: 20110411, end: 20110412
  2. LASIX [Concomitant]
     Dosage: 20 MILLIGRAM
     Route: 048
     Dates: start: 20110301
  3. MAGNESIUM OXIDE [Concomitant]
     Dosage: 1.5 GRAM
     Route: 048
  4. AZACITIDINE [Suspect]
     Indication: MYELODYSPLASTIC SYNDROME
     Route: 058
     Dates: start: 20110314, end: 20110318
  5. FUROSEMIDE [Concomitant]
     Dosage: 40 MILLIGRAM
     Route: 048

REACTIONS (3)
  - CONSTIPATION [None]
  - HEPATIC FUNCTION ABNORMAL [None]
  - RASH GENERALISED [None]
